FAERS Safety Report 8535609-7 (Version None)
Quarter: 2012Q2

REPORT INFORMATION
  Report Type: 
  Country: None (occurrence: None)
  Receive Date: 20120412
  Receipt Date: 20090714
  Transmission Date: 20120825
  Serious: Yes (Other)
  Sender: FDA-Public Use
  Company Number: PHEH2009US07671

PATIENT
  Sex: Female

DRUGS (3)
  1. AREDIA [Suspect]
  2. FOSAMAX [Suspect]
  3. ZOMETA [Suspect]

REACTIONS (6)
  - OSTEONECROSIS [None]
  - ANHEDONIA [None]
  - DISABILITY [None]
  - ANXIETY [None]
  - PAIN [None]
  - GENERAL PHYSICAL HEALTH DETERIORATION [None]
